FAERS Safety Report 4795798-7 (Version None)
Quarter: 2005Q4

REPORT INFORMATION
  Report Type: 
  Country: None (occurrence: None)
  Receive Date: 20051007
  Receipt Date: 20050927
  Transmission Date: 20060501
  Serious: Yes (Other)
  Sender: FDA-Public Use
  Company Number: 173938

PATIENT
  Age: 53 Year
  Sex: Female

DRUGS (8)
  1. AVONEX [Suspect]
     Indication: MULTIPLE SCLEROSIS
     Dosage: 30 UG;QW;IM
     Route: 030
     Dates: start: 20030530, end: 20030531
  2. DIAVAN [Concomitant]
  3. ZANAFLEX [Concomitant]
  4. LIPITOR [Concomitant]
  5. WELLBUTRIN [Concomitant]
  6. TRILEPTAL [Concomitant]
  7. VISTARIL [Concomitant]
  8. BENADRYL [Concomitant]

REACTIONS (4)
  - ANAPHYLACTIC REACTION [None]
  - DRUG HYPERSENSITIVITY [None]
  - INJECTION SITE HAEMORRHAGE [None]
  - INJECTION SITE URTICARIA [None]
